FAERS Safety Report 16721198 (Version 1)
Quarter: 2019Q3

REPORT INFORMATION
  Report Type: Spontaneous
  Country: US (occurrence: US)
  Receive Date: 20190820
  Receipt Date: 20190820
  Transmission Date: 20191005
  Serious: Yes (Other)
  Sender: FDA-Public Use
  Company Number: PHHY2019US190082

PATIENT
  Age: 60 Year
  Sex: Male

DRUGS (3)
  1. FLUOROURACIL. [Suspect]
     Active Substance: FLUOROURACIL
     Indication: MALIGNANT NEOPLASM OF AMPULLA OF VATER
     Route: 065
  2. FOLINIC ACID [Suspect]
     Active Substance: LEUCOVORIN
     Indication: MALIGNANT NEOPLASM OF AMPULLA OF VATER
     Route: 065
  3. OXALIPLATIN. [Suspect]
     Active Substance: OXALIPLATIN
     Indication: MALIGNANT NEOPLASM OF AMPULLA OF VATER
     Route: 065

REACTIONS (5)
  - Malignant neoplasm progression [Unknown]
  - Vocal cord paralysis [Unknown]
  - Product use in unapproved indication [Unknown]
  - Dysphonia [Unknown]
  - Malignant neoplasm of ampulla of Vater [Unknown]
